FAERS Safety Report 23961624 (Version 1)
Quarter: 2024Q2

REPORT INFORMATION
  Report Type: Spontaneous
  Country: NL (occurrence: NL)
  Receive Date: 20240611
  Receipt Date: 20240611
  Transmission Date: 20240716
  Serious: Yes (Hospitalization)
  Sender: FDA-Public Use
  Company Number: NL-GRUNENTHAL-2024-121144

PATIENT
  Sex: Female

DRUGS (1)
  1. QUTENZA [Suspect]
     Active Substance: CAPSAICIN
     Indication: Neuropathy peripheral
     Dosage: UNK
     Route: 065

REACTIONS (3)
  - Pain [Recovered/Resolved]
  - Erythema [Recovered/Resolved]
  - Raynaud^s phenomenon [Recovered/Resolved]
